FAERS Safety Report 25304412 (Version 1)
Quarter: 2025Q2

REPORT INFORMATION
  Report Type: Spontaneous
  Country: US (occurrence: None)
  Receive Date: 20250512
  Receipt Date: 20250512
  Transmission Date: 20250716
  Serious: Yes (Hospitalization)
  Sender: FDA-CTU
  Company Number: None

PATIENT
  Sex: Female

DRUGS (1)
  1. MAVYRET [Suspect]
     Active Substance: GLECAPREVIR\PIBRENTASVIR
     Indication: Hepatitis C
     Dosage: 3 DF DOSAGE FORM DAILY ORAL ?
     Route: 048
     Dates: start: 20250417

REACTIONS (4)
  - Rash [None]
  - Nausea [None]
  - Diarrhoea [None]
  - Fatigue [None]
